FAERS Safety Report 10290497 (Version 1)
Quarter: 2014Q3

REPORT INFORMATION
  Report Type: Spontaneous
  Country: UA (occurrence: None)
  Receive Date: 20140708
  Receipt Date: 20140708
  Transmission Date: 20150326
  Serious: Yes (Other)
  Sender: FDA-Public Use
  Company Number: 7302748

PATIENT
  Age: 32 Year
  Sex: Male

DRUGS (1)
  1. LEVOTHYROXINE SODIUM. [Suspect]
     Active Substance: LEVOTHYROXINE SODIUM
     Indication: GOITRE
     Route: 048
     Dates: start: 20140424, end: 20140428

REACTIONS (3)
  - Thyrotoxic crisis [None]
  - Renal atrophy [None]
  - Overdose [None]

NARRATIVE: CASE EVENT DATE: 20140424
